FAERS Safety Report 10441356 (Version 1)
Quarter: 2014Q3

REPORT INFORMATION
  Report Type: Spontaneous
  Country: US (occurrence: None)
  Receive Date: 20140908
  Receipt Date: 20140908
  Transmission Date: 20150326
  Serious: No
  Sender: FDA-Public Use
  Company Number: None

PATIENT
  Sex: Female
  Weight: 95.26 kg

DRUGS (19)
  1. ACIDORISE [Concomitant]
  2. VIT. D [Concomitant]
  3. CINNAMON. [Concomitant]
     Active Substance: CINNAMON
  4. SEROQUEL [Concomitant]
     Active Substance: QUETIAPINE FUMARATE
  5. RESTORIL [Concomitant]
     Active Substance: TEMAZEPAM
  6. PRAWOCHOL [Concomitant]
  7. TRILEPTAL [Suspect]
     Active Substance: OXCARBAZEPINE
     Indication: BIPOLAR I DISORDER
     Route: 048
  8. BENTYL [Concomitant]
     Active Substance: DICYCLOMINE HYDROCHLORIDE
  9. VIT. C. [Concomitant]
  10. GLYBURIDE. [Concomitant]
     Active Substance: GLYBURIDE
  11. LAMICTAL [Concomitant]
     Active Substance: LAMOTRIGINE
  12. SOMA [Concomitant]
     Active Substance: CARISOPRODOL
  13. LISINOPRIL. [Concomitant]
     Active Substance: LISINOPRIL
  14. OCDEVITE [Concomitant]
  15. FISH OIL [Concomitant]
     Active Substance: FISH OIL
  16. VITAMIN E [Concomitant]
     Active Substance: .ALPHA.-TOCOPHEROL
  17. TEGRETOL [Suspect]
     Active Substance: CARBAMAZEPINE
     Indication: BIPOLAR I DISORDER
     Route: 048
  18. ATIVAN [Concomitant]
     Active Substance: LORAZEPAM
  19. FLAX SEED [Concomitant]
     Active Substance: FLAX SEED

REACTIONS (1)
  - Renal failure acute [None]
